FAERS Safety Report 17532728 (Version 1)
Quarter: 2020Q1

REPORT INFORMATION
  Report Type: Spontaneous
  Country: US (occurrence: US)
  Receive Date: 20200304
  Receipt Date: 20200304
  Transmission Date: 20200409
  Serious: No
  Sender: FDA-Public Use
  Company Number: None

PATIENT
  Age: 58 Year
  Sex: Female

DRUGS (1)
  1. ENBREL [Suspect]
     Active Substance: ETANERCEPT
     Route: 058
     Dates: start: 201911

REACTIONS (5)
  - Weight decreased [None]
  - Alopecia [None]
  - Treatment noncompliance [None]
  - Product use issue [None]
  - Headache [None]

NARRATIVE: CASE EVENT DATE: 20200304
